FAERS Safety Report 10211638 (Version 1)
Quarter: 2014Q2

REPORT INFORMATION
  Report Type: Spontaneous
  Country: US (occurrence: US)
  Receive Date: 20140602
  Receipt Date: 20140602
  Transmission Date: 20141212
  Serious: No
  Sender: FDA-Public Use
  Company Number: US-PFIZER INC-2014147031

PATIENT
  Sex: Male

DRUGS (2)
  1. EFFEXOR [Suspect]
     Dosage: 75 MG, UNK
     Dates: start: 2014
  2. EFFEXOR [Suspect]
     Dosage: 150 MG, UNK
     Dates: start: 2014

REACTIONS (4)
  - Drug ineffective [Unknown]
  - Balance disorder [Unknown]
  - Dizziness [Unknown]
  - Confusional state [Unknown]
